FAERS Safety Report 21843938 (Version 2)
Quarter: 2023Q1

REPORT INFORMATION
  Report Type: Spontaneous
  Country: JP (occurrence: JP)
  Receive Date: 20230110
  Receipt Date: 20230123
  Transmission Date: 20230417
  Serious: Yes (Other)
  Sender: FDA-Public Use
  Company Number: JP-TEVA-2023-JP-2844642

PATIENT
  Age: 3 Year
  Sex: Male

DRUGS (8)
  1. CARBOPLATIN [Suspect]
     Active Substance: CARBOPLATIN
     Indication: Congenital retinoblastoma
     Route: 065
  2. VINCRISTINE [Suspect]
     Active Substance: VINCRISTINE
     Indication: Congenital retinoblastoma
     Dosage: ROUTE: {SYSTEMIC}
     Route: 050
  3. ETOPOSIDE [Suspect]
     Active Substance: ETOPOSIDE
     Indication: Congenital retinoblastoma
     Dosage: ROUTE: {SYSTEMIC}
     Route: 050
  4. MELPHALAN [Suspect]
     Active Substance: MELPHALAN
     Indication: Congenital retinoblastoma
     Route: 013
  5. MELPHALAN [Suspect]
     Active Substance: MELPHALAN
     Route: 050
  6. TOPOTECAN [Suspect]
     Active Substance: TOPOTECAN HYDROCHLORIDE
     Indication: Congenital retinoblastoma
     Route: 013
  7. DOXORUBICIN [Suspect]
     Active Substance: DOXORUBICIN
     Indication: Congenital retinoblastoma
     Dosage: ROUTE: {SYSTEMIC}
     Route: 050
  8. CYCLOPHOSPHAMIDE [Suspect]
     Active Substance: CYCLOPHOSPHAMIDE
     Indication: Congenital retinoblastoma
     Dosage: ROUTE: {SYSTEMIC}
     Route: 050

REACTIONS (2)
  - Staphyloma [Unknown]
  - Drug ineffective [Unknown]
